FAERS Safety Report 8686852 (Version 2)
Quarter: 2013Q2

REPORT INFORMATION
  Report Type: Spontaneous
  Country: US (occurrence: US)
  Receive Date: 20120727
  Receipt Date: 20130607
  Transmission Date: 20140414
  Serious: Yes (Hospitalization)
  Sender: FDA-Public Use
  Company Number: US-AMGEN-USASP2012046158

PATIENT
  Age: 59 Year
  Sex: Male

DRUGS (1)
  1. ENBREL [Suspect]
     Indication: RHEUMATOID ARTHRITIS
     Dosage: 50 MG, QWK
     Dates: start: 20050701

REACTIONS (4)
  - Road traffic accident [Recovered/Resolved]
  - Ankle fracture [Recovered/Resolved]
  - Rib fracture [Recovered/Resolved]
  - Injection site pain [Not Recovered/Not Resolved]
